FAERS Safety Report 11740319 (Version 2)
Quarter: 2015Q4

REPORT INFORMATION
  Report Type: Spontaneous
  Country: US (occurrence: US)
  Receive Date: 20151110
  Receipt Date: 20151120
  Transmission Date: 20160304
  Serious: No
  Sender: FDA-Public Use
  Company Number: US-ELI_LILLY_AND_COMPANY-US201202002295

PATIENT
  Age: 75 Year
  Sex: Female

DRUGS (4)
  1. FORTEO [Suspect]
     Active Substance: TERIPARATIDE
     Dosage: 20 UG, QD
     Route: 065
  2. FORTEO [Suspect]
     Active Substance: TERIPARATIDE
     Dosage: 20 UG, QD
     Route: 065
  3. FORTEO [Suspect]
     Active Substance: TERIPARATIDE
     Dosage: 20 UG, QD
     Route: 065
  4. FORTEO [Suspect]
     Active Substance: TERIPARATIDE
     Indication: OSTEOPOROSIS
     Dosage: 20 UG, QD
     Route: 065
     Dates: start: 20120207

REACTIONS (14)
  - Muscular weakness [Unknown]
  - Injection site rash [Unknown]
  - Localised oedema [Unknown]
  - Burning sensation [Unknown]
  - Injection site bruising [Not Recovered/Not Resolved]
  - Injection site pain [Unknown]
  - Alopecia [Unknown]
  - Dizziness [Unknown]
  - Nail disorder [Unknown]
  - Injection site erythema [Not Recovered/Not Resolved]
  - Overdose [Unknown]
  - Onychoclasis [Unknown]
  - Drug hypersensitivity [Unknown]
  - Nervousness [Unknown]

NARRATIVE: CASE EVENT DATE: 20120207
